FAERS Safety Report 7307812-5 (Version None)
Quarter: 2011Q1

REPORT INFORMATION
  Report Type: 
  Country: None (occurrence: None)
  Receive Date: 20110223
  Receipt Date: 20110214
  Transmission Date: 20110831
  Serious: Yes (Life-Threatening, Hospitalization)
  Sender: FDA-Public Use
  Company Number: FR-KINGPHARMUSA00001-K201100162

PATIENT
  Age: 78 Year
  Sex: Male

DRUGS (13)
  1. ALTACE [Suspect]
     Dosage: UNK
     Route: 048
     Dates: end: 20110122
  2. LOXEN [Concomitant]
     Dosage: UNK
  3. ASPIRIN [Concomitant]
     Dosage: UNK
  4. TAHOR [Concomitant]
     Dosage: UNK
  5. XANAX [Concomitant]
     Dosage: UNK
  6. DAFALGAN [Concomitant]
     Dosage: UNK
  7. TAMSULOSIN HCL [Concomitant]
     Dosage: UNK
  8. LASIX [Suspect]
     Dosage: UNK
     Route: 048
     Dates: end: 20110122
  9. METFORMIN [Concomitant]
     Dosage: UNK
  10. CORDARONE [Concomitant]
     Dosage: UNK
  11. LYRICA [Concomitant]
     Dosage: UNK
  12. PAROXETINE HCL [Concomitant]
     Dosage: UNK
  13. OMEPRAZOLE [Concomitant]
     Dosage: UNK

REACTIONS (4)
  - LACTIC ACIDOSIS [None]
  - DEHYDRATION [None]
  - RENAL FAILURE ACUTE [None]
  - DIARRHOEA [None]
